FAERS Safety Report 18220161 (Version 2)
Quarter: 2020Q4

REPORT INFORMATION
  Report Type: Report from Study
  Country: None (occurrence: US)
  Receive Date: 20200902
  Receipt Date: 20201114
  Transmission Date: 20210113
  Serious: Yes (Hospitalization)
  Sender: FDA-Public Use
  Company Number: US-ABBVIE-20P-163-3441639-00

PATIENT
  Sex: Male

DRUGS (2)
  1. IMBRUVICA [Suspect]
     Active Substance: IBRUTINIB
     Route: 048
  2. IMBRUVICA [Suspect]
     Active Substance: IBRUTINIB
     Indication: CHRONIC LYMPHOCYTIC LEUKAEMIA
     Route: 048
     Dates: start: 20200527

REACTIONS (14)
  - Chromaturia [Unknown]
  - Muscular weakness [Recovering/Resolving]
  - Malaise [Unknown]
  - Aphonia [Unknown]
  - Dysphonia [Unknown]
  - Migraine [Unknown]
  - Dizziness [Unknown]
  - Urinary tract infection [Unknown]
  - Peripheral swelling [Recovering/Resolving]
  - Speech disorder [Unknown]
  - Pain in extremity [Unknown]
  - Liver disorder [Unknown]
  - Blood urine present [Unknown]
  - Gait disturbance [Unknown]

NARRATIVE: CASE EVENT DATE: 2020
